FAERS Safety Report 13166334 (Version 1)
Quarter: 2017Q1

REPORT INFORMATION
  Report Type: Spontaneous
  Country: US (occurrence: US)
  Receive Date: 20170127
  Receipt Date: 20170127
  Transmission Date: 20170428
  Serious: Yes (Hospitalization)
  Sender: FDA-Public Use
  Company Number: None

PATIENT
  Age: 74 Year
  Sex: Male
  Weight: 68 kg

DRUGS (8)
  1. SOVALDI [Suspect]
     Active Substance: SOFOSBUVIR
     Indication: HEPATITIS C
     Dosage: 1 PILL
     Route: 048
     Dates: start: 20161107
  2. JANUET [Concomitant]
     Active Substance: METFORMIN HYDROCHLORIDE\SITAGLIPTIN PHOSPHATE
  3. ALDACTONE [Concomitant]
     Active Substance: SPIRONOLACTONE
  4. CARDILOC [Concomitant]
     Active Substance: BISOPROLOL FUMARATE
  5. DIGOXIN-ZORI [Concomitant]
     Active Substance: DIGOXIN
  6. GLUCO-RITE [Concomitant]
     Active Substance: GLIPIZIDE
  7. DAKLINZA [Suspect]
     Active Substance: DACLATASVIR
     Indication: HEPATITIS C
     Dosage: 1 PILL
     Route: 048
     Dates: start: 20161107
  8. FUSID [Concomitant]
     Active Substance: FUROSEMIDE

REACTIONS (2)
  - Fall [None]
  - Femur fracture [None]

NARRATIVE: CASE EVENT DATE: 20161216
